FAERS Safety Report 7554580-8 (Version None)
Quarter: 2011Q2

REPORT INFORMATION
  Report Type: 
  Country: None (occurrence: None)
  Receive Date: 20110617
  Receipt Date: 20110614
  Transmission Date: 20111010
  Serious: Yes (Death)
  Sender: FDA-Public Use
  Company Number: GB-ROCHE-782179

PATIENT

DRUGS (3)
  1. OXALIPLATIN [Suspect]
     Route: 065
  2. AVASTIN [Suspect]
     Route: 065
  3. CAPECITABINE [Suspect]
     Route: 065

REACTIONS (1)
  - FISTULA [None]
